FAERS Safety Report 10453069 (Version 1)
Quarter: 2014Q3

REPORT INFORMATION
  Report Type: Report from Study
  Country: US (occurrence: US)
  Receive Date: 20140915
  Receipt Date: 20140915
  Transmission Date: 20150326
  Serious: Yes (Hospitalization, Other)
  Sender: FDA-Public Use
  Company Number: US-ABBVIE-14K-163-1281966-00

PATIENT
  Age: 61 Year
  Sex: Female
  Weight: 48.58 kg

DRUGS (8)
  1. HUMIRA [Suspect]
     Active Substance: ADALIMUMAB
     Dates: start: 2013
  2. KADIAN [Concomitant]
     Active Substance: MORPHINE SULFATE
     Indication: PAIN
  3. KADIAN [Concomitant]
     Active Substance: MORPHINE SULFATE
     Indication: SURGERY
  4. ZYRTEC [Concomitant]
     Active Substance: CETIRIZINE HYDROCHLORIDE
     Indication: HYPERSENSITIVITY
  5. HUMIRA [Suspect]
     Active Substance: ADALIMUMAB
     Indication: RHEUMATOID ARTHRITIS
     Dates: start: 201208, end: 2013
  6. ESTRATEST [Concomitant]
     Active Substance: ESTROGENS, ESTERIFIED\METHYLTESTOSTERONE
     Indication: HORMONE REPLACEMENT THERAPY
  7. HUMIRA [Suspect]
     Active Substance: ADALIMUMAB
     Dates: start: 20140802
  8. UNITHROID [Concomitant]
     Active Substance: LEVOTHYROXINE SODIUM
     Indication: THYROID DISORDER

REACTIONS (11)
  - Injection site reaction [Recovered/Resolved]
  - Gastrooesophageal reflux disease [Unknown]
  - Headache [Recovered/Resolved]
  - Injection site haemorrhage [Unknown]
  - Drug effect incomplete [Recovering/Resolving]
  - Incorrect dose administered [Unknown]
  - Pyrexia [Unknown]
  - Device issue [Unknown]
  - Diarrhoea [Recovered/Resolved]
  - Oesophageal disorder [Unknown]
  - Pneumonia [Recovered/Resolved]

NARRATIVE: CASE EVENT DATE: 20140527
